FAERS Safety Report 23906653 (Version 1)
Quarter: 2024Q2

REPORT INFORMATION
  Report Type: Report from Study
  Country: US (occurrence: US)
  Receive Date: 20240528
  Receipt Date: 20240528
  Transmission Date: 20240716
  Serious: Yes (Other)
  Sender: FDA-Public Use
  Company Number: US-HORIZON THERAPEUTICS-HZN-2024-004408

PATIENT
  Age: 48 Year
  Sex: Male

DRUGS (8)
  1. RAVICTI [Suspect]
     Active Substance: GLYCEROL PHENYLBUTYRATE
     Indication: Urea cycle disorder
     Dosage: 5 ML (5.5 G), TID WITH MEALS, TOTAL DAILY DOSE 15 ML
     Route: 048
     Dates: start: 2013
  2. RAVICTI [Suspect]
     Active Substance: GLYCEROL PHENYLBUTYRATE
     Dosage: UNK, LAST ADMINISTRATION PRIOR TO THE EVENT
     Route: 048
     Dates: start: 20240310
  3. RAVICTI [Suspect]
     Active Substance: GLYCEROL PHENYLBUTYRATE
     Dosage: UNK DOSE
     Route: 065
     Dates: start: 20240416
  4. ABILIFY [Concomitant]
     Active Substance: ARIPIPRAZOLE
     Indication: Product used for unknown indication
     Dosage: 2 MG
     Route: 065
  5. LACTULOSE [Concomitant]
     Active Substance: LACTULOSE
     Indication: Product used for unknown indication
     Dosage: 10 G/15 ML
     Route: 065
  6. DIAZEPAM [Concomitant]
     Active Substance: DIAZEPAM
     Indication: Product used for unknown indication
     Dosage: 10 MG
     Route: 065
  7. TERBINAFINE HYDROCHLORIDE [Concomitant]
     Active Substance: TERBINAFINE HYDROCHLORIDE
     Indication: Product used for unknown indication
     Dosage: 250 MG
     Route: 065
  8. ENSURE [Concomitant]
     Active Substance: AMINO ACIDS\DEXTROSE\ELECTROLYTES NOS\SOYBEAN OIL\VITAMINS
     Indication: Product used for unknown indication
     Dosage: UNK
     Route: 065

REACTIONS (8)
  - Seizure [Unknown]
  - Seizure [Unknown]
  - Seizure [Unknown]
  - Seizure [Unknown]
  - Seizure [Unknown]
  - Seizure [Unknown]
  - Seizure [Unknown]
  - Product supply issue [Recovered/Resolved]

NARRATIVE: CASE EVENT DATE: 20240301
